FAERS Safety Report 13342696 (Version 2)
Quarter: 2017Q3

REPORT INFORMATION
  Report Type: Spontaneous
  Country: GB (occurrence: GB)
  Receive Date: 20170316
  Receipt Date: 20170726
  Transmission Date: 20171127
  Serious: Yes (Other)
  Sender: FDA-Public Use
  Company Number: GB-JNJFOC-20170315425

PATIENT
  Age: 67 Year
  Sex: Male

DRUGS (1)
  1. XARELTO [Suspect]
     Active Substance: RIVAROXABAN
     Indication: DEEP VEIN THROMBOSIS
     Route: 048
     Dates: start: 2014

REACTIONS (6)
  - Sensory disturbance [Unknown]
  - Limb discomfort [Not Recovered/Not Resolved]
  - Gingival bleeding [Recovered/Resolved]
  - Penile size reduced [Not Recovered/Not Resolved]
  - Renal pain [Recovered/Resolved]
  - Arthralgia [Unknown]
